FAERS Safety Report 7436673-9 (Version None)
Quarter: 2011Q2

REPORT INFORMATION
  Report Type: 
  Country: None (occurrence: None)
  Receive Date: 20110426
  Receipt Date: 20110413
  Transmission Date: 20111010
  Serious: Yes (Hospitalization)
  Sender: FDA-Public Use
  Company Number: PHHY2011JP26618

PATIENT
  Sex: Male

DRUGS (3)
  1. ADALAT CC [Concomitant]
     Dosage: 40 MG, UNK
     Route: 048
     Dates: start: 20081126
  2. DIOVAN [Suspect]
     Dosage: 160 MG, DAILY
     Route: 048
     Dates: start: 20081112
  3. DIOVAN [Suspect]
     Indication: HYPERTENSION
     Dosage: 80 MG, DAILY
     Route: 048
     Dates: start: 20081101, end: 20081111

REACTIONS (3)
  - PRINZMETAL ANGINA [None]
  - HYPERTENSION [None]
  - CHEST DISCOMFORT [None]
